FAERS Safety Report 5160452-9 (Version None)
Quarter: 2006Q4

REPORT INFORMATION
  Report Type: 
  Country: None (occurrence: None)
  Receive Date: 20061121
  Receipt Date: 20061107
  Transmission Date: 20070319
  Serious: Yes (Other)
  Sender: FDA-Public Use
  Company Number: 228600

PATIENT
  Age: 43 Year
  Sex: Female

DRUGS (2)
  1. HERCEPTIN [Suspect]
     Indication: BREAST CANCER
     Dosage: 2 MG/KG, 1/WEEK, INTRAVENOUS
     Route: 042
     Dates: start: 20060419
  2. TAXOL [Concomitant]

REACTIONS (4)
  - NAIL INFECTION [None]
  - ONYCHOLYSIS [None]
  - STAPHYLOCOCCAL INFECTION [None]
  - TELANGIECTASIA [None]
